FAERS Safety Report 7763928-0 (Version None)
Quarter: 2011Q3

REPORT INFORMATION
  Report Type: 
  Country: None (occurrence: None)
  Receive Date: 20110916
  Receipt Date: 20110901
  Transmission Date: 20111222
  Serious: Yes (Other)
  Sender: FDA-Public Use
  Company Number: EU-2011-10161

PATIENT
  Age: 70 Year
  Sex: Male
  Weight: 79 kg

DRUGS (3)
  1. SIMVASTATIN [Concomitant]
  2. PLETAL [Suspect]
     Indication: PERIPHERAL ARTERIAL OCCLUSIVE DISEASE
     Dosage: 100 MG MILLIGRAM(S), BID, ORAL
     Route: 048
     Dates: start: 20110812
  3. ASPIRIN [Concomitant]

REACTIONS (4)
  - HYPERHIDROSIS [None]
  - PULMONARY EMBOLISM [None]
  - DIARRHOEA [None]
  - TACHYCARDIA [None]
